FAERS Safety Report 7358883-1 (Version None)
Quarter: 2011Q1

REPORT INFORMATION
  Report Type: 
  Country: None (occurrence: None)
  Receive Date: 20110317
  Receipt Date: 20110311
  Transmission Date: 20110831
  Serious: Yes (Other)
  Sender: FDA-Public Use
  Company Number: US-PFIZER INC-2006069803

PATIENT
  Sex: Female

DRUGS (9)
  1. ZYPREXA [Concomitant]
     Dosage: UNK
     Dates: start: 20030113, end: 20030429
  2. NEURONTIN [Suspect]
     Indication: ILL-DEFINED DISORDER
     Dosage: 300 MG, 2X/DAY
     Dates: start: 20030129
  3. NEURONTIN [Suspect]
     Dosage: 300 MG EVERY MORNING AND 600 MG EVERY NIGHT
     Dates: start: 20030204
  4. PAXIL [Concomitant]
     Dosage: 40 MG, UNK
     Dates: start: 20030113, end: 20031002
  5. NEURONTIN [Suspect]
     Dosage: 600 MG, 2X/DAY
     Dates: start: 20030219
  6. EFFEXOR XR [Concomitant]
     Dosage: 150 MG, 2X/DAY
     Dates: start: 20030113, end: 20031002
  7. NEURONTIN [Suspect]
     Dosage: 800 MG, UNK
     Dates: start: 20040630
  8. KLONOPIN [Concomitant]
     Dosage: 0.5 MG, UNK
     Dates: start: 20030113, end: 20031002
  9. NEURONTIN [Suspect]
     Dosage: 600 MG, UNK
     Route: 048
     Dates: start: 20030129

REACTIONS (1)
  - SUICIDE ATTEMPT [None]
